FAERS Safety Report 14107715 (Version 2)
Quarter: 2017Q4

REPORT INFORMATION
  Report Type: Spontaneous
  Country: US (occurrence: US)
  Receive Date: 20171019
  Receipt Date: 20171204
  Transmission Date: 20180321
  Serious: Yes (Other)
  Sender: FDA-Public Use
  Company Number: US-TARO-2017TAR00871

PATIENT
  Age: 82 Year
  Sex: Male
  Weight: 73.47 kg

DRUGS (2)
  1. TOBRAMYCIN AND DEXAMETHASONE [Suspect]
     Active Substance: DEXAMETHASONE\TOBRAMYCIN
     Indication: INFECTION
     Dosage: 1 DROP, 4X/DAY
     Route: 047
     Dates: start: 20170919, end: 2017
  2. AMIODARONE HCL TABLET 300 MG [Suspect]
     Active Substance: AMIODARONE HYDROCHLORIDE
     Indication: ATRIAL FIBRILLATION
     Dosage: 300 MG, 1X/DAY
     Dates: start: 20170719

REACTIONS (6)
  - Off label use [Not Recovered/Not Resolved]
  - Infection [Unknown]
  - Vision blurred [Recovering/Resolving]
  - Meibomian gland dysfunction [Recovering/Resolving]
  - Blood pressure increased [Recovered/Resolved]
  - Glaucoma [Unknown]

NARRATIVE: CASE EVENT DATE: 20170719
